FAERS Safety Report 5558269-6 (Version None)
Quarter: 2007Q4

REPORT INFORMATION
  Report Type: 
  Country: None (occurrence: None)
  Receive Date: 20071214
  Receipt Date: 20071204
  Transmission Date: 20080405
  Serious: Yes (Other)
  Sender: FDA-Public Use
  Company Number: JP-PFIZER INC-2007095586

PATIENT
  Sex: Male
  Weight: 84 kg

DRUGS (14)
  1. GABAPEN [Suspect]
     Indication: PAIN
     Route: 048
     Dates: start: 20071108, end: 20071128
  2. LANDSEN [Suspect]
     Indication: PAIN
     Route: 048
     Dates: start: 20071101, end: 20071107
  3. FENTANYL [Suspect]
     Indication: PAIN
     Route: 058
     Dates: start: 20071107, end: 20071129
  4. HYPEN [Concomitant]
     Route: 048
  5. MYSLEE [Concomitant]
     Route: 048
  6. SELBEX [Concomitant]
     Route: 048
  7. ISCOTIN [Concomitant]
     Route: 048
     Dates: start: 20071030, end: 20071113
  8. RIFADIN [Concomitant]
     Route: 048
     Dates: start: 20071030, end: 20071113
  9. EBUTOL [Concomitant]
     Route: 048
     Dates: start: 20071030, end: 20071113
  10. PYRAMIDE [Concomitant]
     Route: 048
     Dates: start: 20071030, end: 20071113
  11. PYRIDOXAL PHOSPHATE [Concomitant]
     Route: 048
  12. ROHYPNOL [Concomitant]
     Route: 048
  13. BROCIN-CODEINE [Concomitant]
     Route: 048
     Dates: start: 20071030
  14. OXYCONTIN [Concomitant]
     Route: 048
     Dates: start: 20071030, end: 20071106

REACTIONS (2)
  - DYSPNOEA [None]
  - HYPOXIA [None]
